FAERS Safety Report 8833017 (Version 3)
Quarter: 2013Q1

REPORT INFORMATION
  Report Type: Report from Study
  Country: JP (occurrence: JP)
  Receive Date: 20121010
  Receipt Date: 20130206
  Transmission Date: 20140127
  Serious: Yes (Hospitalization, Other)
  Sender: FDA-Public Use
  Company Number: JP-PFIZER INC-2012248922

PATIENT
  Age: 73 Year
  Sex: Male

DRUGS (10)
  1. NOVASTAN [Suspect]
     Indication: EMBOLIC STROKE
     Dosage: 10MG/180MIN, DAILY
     Route: 041
     Dates: start: 20120520, end: 20120525
  2. PRAZAXA [Suspect]
     Indication: EMBOLIC STROKE
     Dosage: 300 MG, DAILY
     Route: 048
     Dates: start: 20120530, end: 20120611
  3. RADICUT [Concomitant]
     Indication: EMBOLIC STROKE
     Dosage: 30 MG, 2X/DAY
     Route: 041
     Dates: start: 20120520, end: 20120526
  4. GLYCEOL [Concomitant]
     Indication: EMBOLIC STROKE
     Dosage: UNK
     Route: 041
     Dates: start: 20120523, end: 20120528
  5. HERBESSER [Concomitant]
     Indication: HYPERTENSION
     Dosage: 100 MG, DAILY
     Route: 048
     Dates: start: 20120530, end: 20120615
  6. WARFARIN POTASSIUM [Concomitant]
     Indication: EMBOLIC STROKE
     Dosage: 1 MG, DAILY
     Route: 048
     Dates: start: 20120614, end: 20120620
  7. WARFARIN POTASSIUM [Concomitant]
     Dosage: 2 MG, DAILY
     Route: 048
     Dates: start: 20120621
  8. HALFDIGOXIN [Concomitant]
     Indication: ATRIAL FIBRILLATION
     Dosage: 0.125 MG, DAILY
     Route: 048
     Dates: start: 20120530, end: 20120615
  9. TAKEPRON [Concomitant]
     Indication: PROPHYLAXIS AGAINST GASTROINTESTINAL ULCER
     Dosage: 30 MG, DAILY
     Route: 048
     Dates: start: 20120608
  10. PRAZAXA [Concomitant]
     Indication: EMBOLIC STROKE
     Dosage: 220 MG, DAILY
     Route: 048
     Dates: start: 20120612, end: 20120614

REACTIONS (4)
  - Haemorrhagic cerebral infarction [Recovering/Resolving]
  - Pneumonia aspiration [Recovered/Resolved]
  - Hepatic enzyme increased [Recovering/Resolving]
  - Hepatic enzyme increased [Recovering/Resolving]
